FAERS Safety Report 25347764 (Version 3)
Quarter: 2025Q2

REPORT INFORMATION
  Report Type: Spontaneous
  Country: US (occurrence: US)
  Receive Date: 20250522
  Receipt Date: 20250619
  Transmission Date: 20250716
  Serious: No
  Sender: JOHNSON AND JOHNSON
  Company Number: US-JNJFOC-20250518000

PATIENT
  Age: 63 Year
  Sex: Female

DRUGS (1)
  1. SIMPONI [Suspect]
     Active Substance: GOLIMUMAB
     Indication: Product used for unknown indication
     Route: 058

REACTIONS (5)
  - Product dose omission issue [Unknown]
  - Device issue [Unknown]
  - Device leakage [Unknown]
  - Accidental exposure to product [Unknown]
  - Pain [Unknown]

NARRATIVE: CASE EVENT DATE: 20250501
